FAERS Safety Report 6848436-3 (Version None)
Quarter: 2010Q3

REPORT INFORMATION
  Report Type: 
  Country: None (occurrence: None)
  Receive Date: 20100716
  Receipt Date: 20100709
  Transmission Date: 20110219
  Serious: Yes (Hospitalization)
  Sender: FDA-Public Use
  Company Number: SE-MERCK-1006SWE00001

PATIENT
  Age: 1 Year
  Sex: Female

DRUGS (4)
  1. SINGULAIR [Suspect]
     Indication: ASTHMA
     Route: 048
     Dates: start: 20090323, end: 20090101
  2. SINGULAIR [Suspect]
     Route: 048
     Dates: start: 20090801, end: 20100317
  3. ALBUTEROL SULFATE [Concomitant]
     Route: 065
  4. BUDESONIDE [Concomitant]
     Route: 065

REACTIONS (1)
  - MUSCLE CONTRACTIONS INVOLUNTARY [None]
